FAERS Safety Report 10580490 (Version 1)
Quarter: 2014Q4

REPORT INFORMATION
  Report Type: Report from Study
  Country: US (occurrence: US)
  Receive Date: 20141113
  Receipt Date: 20141113
  Transmission Date: 20150529
  Serious: Yes (Other)
  Sender: FDA-Public Use
  Company Number: US-ROCHE-1488761

PATIENT
  Age: 86 Year
  Sex: Male

DRUGS (4)
  1. LEUKERAN [Concomitant]
     Active Substance: CHLORAMBUCIL
  2. RITUXAN [Suspect]
     Active Substance: RITUXIMAB
     Indication: CHRONIC LYMPHOCYTIC LEUKAEMIA
     Route: 042
  3. RITUXAN [Suspect]
     Active Substance: RITUXIMAB
     Route: 042
  4. TREANDA [Suspect]
     Active Substance: BENDAMUSTINE HYDROCHLORIDE
     Indication: PRODUCT USED FOR UNKNOWN INDICATION
     Route: 065

REACTIONS (1)
  - Bone marrow failure [Unknown]
